FAERS Safety Report 6244920-4 (Version None)
Quarter: 2009Q2

REPORT INFORMATION
  Report Type: 
  Country: None (occurrence: None)
  Receive Date: 20090625
  Receipt Date: 20090615
  Transmission Date: 20091009
  Serious: Yes (Other)
  Sender: FDA-Public Use
  Company Number: PHHY2009US16527

PATIENT
  Sex: Male
  Weight: 116.3 kg

DRUGS (7)
  1. EXJADE [Suspect]
     Indication: CHRONIC LYMPHOCYTIC LEUKAEMIA
     Dosage: 2000 MG, QD
     Route: 048
     Dates: start: 20090401
  2. METFORMIN HCL [Concomitant]
     Dosage: 850 MG, UNK
     Route: 048
  3. CYCLOSPORINE [Concomitant]
     Indication: CHRONIC LYMPHOCYTIC LEUKAEMIA
     Dosage: 300 MG, 4XWEEKLY
     Route: 048
     Dates: start: 20090317
  4. CYCLOSPORINE [Concomitant]
     Dosage: 400 MG, 3XWEEKLY
  5. DILTIAZEM [Concomitant]
     Dosage: 180 MG, UNK
     Route: 048
  6. GLIPIZIDE [Concomitant]
     Dosage: 5 MG, QD
     Route: 048
  7. HYDROCHLOROTHIAZIDE [Concomitant]
     Dosage: 25 MG, QD
     Route: 048

REACTIONS (3)
  - CHROMATURIA [None]
  - DIARRHOEA [None]
  - RED BLOOD CELLS URINE POSITIVE [None]
